FAERS Safety Report 5224853-2 (Version None)
Quarter: 2007Q1

REPORT INFORMATION
  Report Type: 
  Country: None (occurrence: None)
  Receive Date: 20070126
  Receipt Date: 20070118
  Transmission Date: 20070707
  Serious: Yes (Other)
  Sender: FDA-Public Use
  Company Number: 2007SP001194

PATIENT
  Age: 47 Year
  Sex: Female
  Weight: 94.8018 kg

DRUGS (2)
  1. PEG-INTRON [Suspect]
     Indication: HEPATITIS C
     Dosage: SC
     Route: 058
     Dates: start: 20061204
  2. RIBAVIRIN [Suspect]
     Indication: HEPATITIS C
     Dosage: PO
     Route: 048
     Dates: start: 20061204

REACTIONS (8)
  - ASTHENIA [None]
  - DEHYDRATION [None]
  - FATIGUE [None]
  - NAUSEA [None]
  - ORAL INTAKE REDUCED [None]
  - VOMITING [None]
  - WEIGHT DECREASED [None]
  - WEIGHT INCREASED [None]
